FAERS Safety Report 7541136-6 (Version None)
Quarter: 2011Q2

REPORT INFORMATION
  Report Type: 
  Country: None (occurrence: None)
  Receive Date: 20110610
  Receipt Date: 20110609
  Transmission Date: 20111010
  Serious: Yes (Other)
  Sender: FDA-Public Use
  Company Number: DE-ABBOTT-10P-062-0633792-00

PATIENT
  Age: 59 Year
  Sex: Female
  Weight: 57 kg

DRUGS (8)
  1. REMICADE [Suspect]
     Indication: ANKYLOSING SPONDYLITIS
     Dosage: 200 MG EVERY 6 WEEKS
     Route: 042
     Dates: start: 20070327, end: 20070927
  2. AZULFIDINE [Suspect]
     Indication: ANKYLOSING SPONDYLITIS
     Dosage: 2 G OD
     Route: 048
     Dates: start: 20080611, end: 20090122
  3. MAGNESIUM SULFATE [Concomitant]
     Indication: PRODUCT USED FOR UNKNOWN INDICATION
  4. CELEBREX [Concomitant]
     Indication: PRODUCT USED FOR UNKNOWN INDICATION
  5. ENBREL [Suspect]
     Indication: ANKYLOSING SPONDYLITIS
     Dosage: 25 MG PER WEEK
     Dates: start: 20090122, end: 20091214
  6. CALCIMAGON [Concomitant]
     Indication: PRODUCT USED FOR UNKNOWN INDICATION
  7. ACTONEL [Concomitant]
     Indication: PRODUCT USED FOR UNKNOWN INDICATION
  8. HUMIRA [Suspect]
     Indication: ANKYLOSING SPONDYLITIS
     Dosage: 40 MG EOW
     Route: 058
     Dates: start: 20070927, end: 20080611

REACTIONS (2)
  - PERICARDIAL EFFUSION [None]
  - CARDIOMEGALY [None]
